FAERS Safety Report 11132755 (Version 1)
Quarter: 2015Q2

REPORT INFORMATION
  Report Type: Spontaneous
  Country: US (occurrence: US)
  Receive Date: 20150522
  Receipt Date: 20150522
  Transmission Date: 20150821
  Serious: Yes (Other)
  Sender: FDA-Public Use
  Company Number: US-BAYER-2015-247747

PATIENT
  Age: 82 Year
  Sex: Male

DRUGS (2)
  1. XOFIGO [Suspect]
     Active Substance: RADIUM RA-223 DICHLORIDE
     Indication: PROSTATE CANCER
     Dosage: UNK
     Route: 042
     Dates: start: 201411
  2. XOFIGO [Suspect]
     Active Substance: RADIUM RA-223 DICHLORIDE
     Indication: METASTASES TO BONE
     Dosage: LAST INJECTION:124 MICROCURIE
     Route: 042
     Dates: start: 20150408

REACTIONS (1)
  - Bone lesion [None]

NARRATIVE: CASE EVENT DATE: 2015
